FAERS Safety Report 24030186 (Version 3)
Quarter: 2024Q3

REPORT INFORMATION
  Report Type: Spontaneous
  Country: CN (occurrence: CN)
  Receive Date: 20240628
  Receipt Date: 20240711
  Transmission Date: 20241017
  Serious: Yes (Death, Other)
  Sender: PARATEK PHARMACEUTICALS
  Company Number: CN-PARATEK PHARMACEUTICALS, INC.-2024PTK00510

PATIENT
  Age: 64 Year
  Sex: Female

DRUGS (6)
  1. NUZYRA [Suspect]
     Active Substance: OMADACYCLINE
     Indication: Pneumonia bacterial
     Dosage: 0.2 G, 1X/DAY
     Route: 041
     Dates: start: 20240618, end: 20240618
  2. NUZYRA [Suspect]
     Active Substance: OMADACYCLINE
     Dosage: 0.1 G, 1X/DAY
     Route: 041
     Dates: start: 20240619, end: 20240619
  3. MEDROL [Concomitant]
     Active Substance: METHYLPREDNISOLONE
     Dosage: 8 MG, 1X/DAY
     Route: 048
     Dates: start: 20240618
  4. LIVE BIFIDOBACTERIUM [Concomitant]
     Dosage: 2 G, 3X/DAY
     Route: 048
     Dates: start: 20240617
  5. LEUCOGEN [Concomitant]
     Active Substance: LEUCOGEN
     Dosage: 20 MG, 1X/DAY
     Route: 048
     Dates: start: 20240617
  6. MONTELUKAST SODIUM [Concomitant]
     Active Substance: MONTELUKAST SODIUM
     Dosage: 10 MG, 1X/DAY, AT BEDTIME
     Route: 048
     Dates: start: 20240617

REACTIONS (5)
  - Acute on chronic liver failure [Fatal]
  - Pneumonia [Fatal]
  - Condition aggravated [Fatal]
  - Haemorrhage subcutaneous [Recovered/Resolved]
  - Rash [Recovered/Resolved]

NARRATIVE: CASE EVENT DATE: 20240619
